FAERS Safety Report 16349053 (Version 4)
Quarter: 2021Q3

REPORT INFORMATION
  Report Type: Report from Study
  Country: IT (occurrence: IT)
  Receive Date: 20190523
  Receipt Date: 20210720
  Transmission Date: 20211014
  Serious: Yes (Death, Other)
  Sender: FDA-Public Use
  Company Number: IT-MYLANLABS-2019M1047837

PATIENT
  Age: 85 Year
  Sex: Male

DRUGS (3)
  1. CLOPIDOGREL [Suspect]
     Active Substance: CLOPIDOGREL BISULFATE
     Indication: PRODUCT USED FOR UNKNOWN INDICATION
     Dosage: 75 MILLIGRAM, QD (75 MG, DAILY)
     Route: 048
     Dates: start: 20170712, end: 20180515
  2. APIXABAN [Suspect]
     Active Substance: APIXABAN
     Indication: PRODUCT USED FOR UNKNOWN INDICATION
     Dosage: UNK
     Route: 065
  3. WARFARIN SODIUM. [Suspect]
     Active Substance: WARFARIN SODIUM
     Indication: PRODUCT USED FOR UNKNOWN INDICATION
     Dosage: UNK
     Route: 048
     Dates: start: 20170712, end: 20180515

REACTIONS (6)
  - Biliary obstruction [Not Recovered/Not Resolved]
  - Multiple organ dysfunction syndrome [Fatal]
  - Septic shock [Unknown]
  - Intra-abdominal haematoma [Unknown]
  - Pneumonia [Fatal]
  - Cholecystitis acute [Not Recovered/Not Resolved]

NARRATIVE: CASE EVENT DATE: 20180505
